FAERS Safety Report 12141224 (Version 2)
Quarter: 2019Q2

REPORT INFORMATION
  Report Type: Spontaneous
  Country: CA (occurrence: CA)
  Receive Date: 20160303
  Receipt Date: 20190521
  Transmission Date: 20190711
  Serious: Yes (Other)
  Sender: FDA-Public Use
  Company Number: CA-PFIZER INC-2016131341

PATIENT
  Age: 63 Year
  Sex: Male

DRUGS (8)
  1. SILDENAFIL. [Concomitant]
     Active Substance: SILDENAFIL
     Dosage: UNK
  2. FOLIC ACID. [Concomitant]
     Active Substance: FOLIC ACID
     Dosage: UNK
  3. PANTOPRAZOLE [Suspect]
     Active Substance: PANTOPRAZOLE
     Dosage: UNK
     Route: 065
  4. DIPHENHYDRAMINE HYDROCHLORIDE. [Concomitant]
     Active Substance: DIPHENHYDRAMINE HYDROCHLORIDE
     Dosage: UNK
  5. PREDNISONE. [Concomitant]
     Active Substance: PREDNISONE
     Dosage: UNK
  6. RITUXAN [Suspect]
     Active Substance: RITUXIMAB
     Indication: CHRONIC LYMPHOCYTIC LEUKAEMIA
     Dosage: 776 MILLIGRAM
     Route: 042
  7. RANITIDINE. [Suspect]
     Active Substance: RANITIDINE
     Dosage: UNK
     Route: 065
  8. ACETAMINOPHEN. [Concomitant]
     Active Substance: ACETAMINOPHEN
     Dosage: UNK
     Route: 065

REACTIONS (10)
  - Haemolysis [Recovered/Resolved]
  - Haemoglobin decreased [Recovered/Resolved]
  - Tremor [Recovered/Resolved]
  - Blood pressure abnormal [Recovered/Resolved]
  - Hypoaesthesia oral [Recovered/Resolved]
  - Blood pressure increased [Recovered/Resolved]
  - Jaundice [Recovered/Resolved]
  - Renal impairment [Recovered/Resolved]
  - Serum ferritin increased [Recovered/Resolved]
  - Heart rate increased [Recovered/Resolved]
